FAERS Safety Report 24719753 (Version 4)
Quarter: 2025Q1

REPORT INFORMATION
  Report Type: Spontaneous
  Country: US (occurrence: US)
  Receive Date: 20241211
  Receipt Date: 20250123
  Transmission Date: 20250408
  Serious: Yes (Other)
  Sender: ROCHE
  Company Number: US-ROCHE-10000149914

PATIENT
  Age: 72 Year
  Sex: Female

DRUGS (1)
  1. ALECENSA [Suspect]
     Active Substance: ALECTINIB HYDROCHLORIDE
     Indication: Lung neoplasm malignant
     Route: 048
     Dates: start: 202205

REACTIONS (8)
  - Ophthalmic migraine [Unknown]
  - Depression [Unknown]
  - Fatigue [Unknown]
  - Depressed mood [Unknown]
  - Borderline glaucoma [Unknown]
  - Appendicitis perforated [Unknown]
  - Cataract [Unknown]
  - Cystitis interstitial [Unknown]
